FAERS Safety Report 20862897 (Version 1)
Quarter: 2022Q2

REPORT INFORMATION
  Report Type: Spontaneous
  Country: US (occurrence: None)
  Receive Date: 20220523
  Receipt Date: 20220523
  Transmission Date: 20220721
  Serious: Yes (Hospitalization)
  Sender: FDA-Public Use
  Company Number: None

PATIENT
  Age: 80 Year
  Sex: Male
  Weight: 101.6 kg

DRUGS (17)
  1. EVEROLIMUS [Suspect]
     Active Substance: EVEROLIMUS
     Indication: Renal cancer
     Dosage: FREQUENCY : DAILY;?
     Route: 048
     Dates: start: 202202
  2. AMIODARONE [Concomitant]
  3. CENTRUM SILVER VITAMIN [Concomitant]
  4. CHLORTHALIDONE COREG [Concomitant]
  5. ELIQUIS [Concomitant]
  6. FINASTERIDE FLOMAX FREESTYLE [Concomitant]
  7. LIBRE [Concomitant]
  8. GLIPIZIDE [Concomitant]
  9. JARDIANCE [Concomitant]
  10. LEVOTHYROXINE SODIUM [Concomitant]
  11. PANTOPRAZOLE [Concomitant]
  12. SIMVASTATIN [Concomitant]
  13. TRESIBA [Concomitant]
  14. FLEX TOUCH [Concomitant]
  15. TRIAMCINOLONE [Concomitant]
  16. ACETORIDE [Concomitant]
  17. TYLENOL [Concomitant]

REACTIONS (1)
  - Illness [None]
